FAERS Safety Report 6889593-2 (Version None)
Quarter: 2010Q3

REPORT INFORMATION
  Report Type: 
  Country: None (occurrence: None)
  Receive Date: 20100730
  Receipt Date: 20080325
  Transmission Date: 20110219
  Serious: No
  Sender: FDA-Public Use
  Company Number: US-PFIZER INC-2008027015

PATIENT
  Age: 48 Year
  Sex: Female
  Weight: 67.272 kg

DRUGS (1)
  1. LIPITOR [Suspect]

REACTIONS (2)
  - LIVER FUNCTION TEST ABNORMAL [None]
  - SKIN DISCOLOURATION [None]
